FAERS Safety Report 6994452-0 (Version None)
Quarter: 2010Q3

REPORT INFORMATION
  Report Type: 
  Country: None (occurrence: None)
  Receive Date: 20100917
  Receipt Date: 20100910
  Transmission Date: 20110219
  Serious: Yes (Death)
  Sender: FDA-Public Use
  Company Number: DE-JNJFOC-20080303334

PATIENT
  Sex: Female
  Weight: 58 kg

DRUGS (8)
  1. CAPECITABINE [Suspect]
     Indication: BREAST CANCER METASTATIC
     Route: 048
  2. CAPECITABINE [Suspect]
     Route: 048
  3. TRAMADOL HYDROCHLORIDE [Concomitant]
     Indication: ABDOMINAL PAIN
     Route: 065
  4. TRAMADOL HYDROCHLORIDE [Concomitant]
     Indication: RIB FRACTURE
     Route: 065
  5. EUTHYROX [Concomitant]
     Indication: THYROID DISORDER
     Route: 048
  6. VOMEX [Concomitant]
     Indication: NAUSEA
     Route: 048
  7. PASPERTIN [Concomitant]
     Indication: NAUSEA
     Dosage: 20-25 DROPS
     Route: 065
  8. LASIX [Concomitant]
     Indication: OEDEMA
     Route: 048

REACTIONS (1)
  - DEATH [None]
